FAERS Safety Report 8083465-6 (Version None)
Quarter: 2012Q1

REPORT INFORMATION
  Report Type: 
  Country: None (occurrence: None)
  Receive Date: 20120127
  Receipt Date: 20110126
  Transmission Date: 20120608
  Serious: No
  Sender: FDA-Public Use
  Company Number: US-ABBOTT-11P-163-0700764-00

PATIENT
  Age: 49 Year
  Sex: Female

DRUGS (8)
  1. HUMIRA [Suspect]
     Indication: PSORIATIC ARTHROPATHY
     Dates: start: 20101215
  2. CYMBALTA [Concomitant]
     Indication: DEPRESSION
     Dosage: 40MG DAILY
  3. SULFASALAZINE [Concomitant]
     Indication: ENTERITIS
     Dosage: 1000MG DAILY
  4. OXYBUTEN [Concomitant]
     Indication: URINARY INCONTINENCE
     Dosage: UNKNOWN DOSE
  5. MUCINEX [Concomitant]
     Indication: PRODUCT USED FOR UNKNOWN INDICATION
     Dosage: BID UNKNOWN DOSE
  6. SYNTHROID [Concomitant]
     Indication: HYPOTHYROIDISM
     Dosage: 125MCG DAILY
  7. NEXIUM [Concomitant]
     Indication: COUGH
     Dosage: 40MG DAILY
  8. CYTOMEL [Concomitant]
     Indication: HYPOTHYROIDISM
     Dosage: UNKNOWN DOSE DAILY

REACTIONS (1)
  - PSORIASIS [None]
